FAERS Safety Report 5125162-2 (Version None)
Quarter: 2006Q4

REPORT INFORMATION
  Report Type: 
  Country: None (occurrence: None)
  Receive Date: 20061006
  Receipt Date: 20060926
  Transmission Date: 20070319
  Serious: Yes (Other)
  Sender: FDA-Public Use
  Company Number: 2006117927

PATIENT
  Sex: Female

DRUGS (1)
  1. EPANUTIN (PHENYTOIN SODIUM) [Suspect]
     Dosage: 600 MG (300 MG, 2 IN 1 D), ORAL
     Route: 048

REACTIONS (1)
  - CONVULSION [None]
